FAERS Safety Report 7927475-5 (Version None)
Quarter: 2011Q4

REPORT INFORMATION
  Report Type: 
  Country: None (occurrence: None)
  Receive Date: 20111118
  Receipt Date: 20111108
  Transmission Date: 20120403
  Serious: Yes (Hospitalization, Other)
  Sender: FDA-Public Use
  Company Number: US-BAYER-2011-035165

PATIENT
  Age: 33 Year
  Sex: Female
  Weight: 95.692 kg

DRUGS (5)
  1. YAZ [Suspect]
     Indication: MENSTRUAL CYCLE MANAGEMENT
  2. SERTRALINE HYDROCHLORIDE [Concomitant]
     Indication: DEPRESSION
     Dosage: UNK
     Dates: start: 20090201
  3. YAZ [Suspect]
     Indication: CONTRACEPTION
     Dosage: UNK
     Dates: start: 20080904, end: 20090423
  4. NSAID'S [Concomitant]
     Dosage: UNK
     Dates: start: 20010101
  5. METFORMIN HCL [Concomitant]
     Indication: DIABETES MELLITUS
     Dosage: UNK
     Dates: start: 20081101, end: 20091101

REACTIONS (4)
  - PULMONARY EMBOLISM [None]
  - SCAR [None]
  - DEEP VEIN THROMBOSIS [None]
  - INJURY [None]
